FAERS Safety Report 11940817 (Version 1)
Quarter: 2016Q1

REPORT INFORMATION
  Report Type: Spontaneous
  Country: US (occurrence: US)
  Receive Date: 20160122
  Receipt Date: 20160122
  Transmission Date: 20160526
  Serious: Yes (Hospitalization)
  Sender: FDA-Public Use
  Company Number: US-LUNDBECK-DKLU2009007

PATIENT
  Age: 81 Year
  Sex: Female

DRUGS (2)
  1. NORTHERA [Suspect]
     Active Substance: DROXIDOPA
     Indication: PARKINSON^S DISEASE
     Route: 048
     Dates: start: 20150625
  2. NORTHERA [Suspect]
     Active Substance: DROXIDOPA
     Indication: MALIGNANT NEOPLASM OF THORAX

REACTIONS (3)
  - Urinary tract infection [Recovering/Resolving]
  - Blood potassium decreased [Recovering/Resolving]
  - Freezing phenomenon [Recovering/Resolving]

NARRATIVE: CASE EVENT DATE: 20160104
